FAERS Safety Report 18967898 (Version 1)
Quarter: 2021Q1

REPORT INFORMATION
  Report Type: Spontaneous
  Country: US (occurrence: US)
  Receive Date: 20210303
  Receipt Date: 20210303
  Transmission Date: 20210420
  Serious: Yes (Hospitalization)
  Sender: FDA-Public Use
  Company Number: None

PATIENT
  Age: 83 Year
  Sex: Male
  Weight: 115.67 kg

DRUGS (1)
  1. APIXABAN (APIXABAN 2.5MG TAB) [Suspect]
     Active Substance: APIXABAN
     Indication: ATRIAL FIBRILLATION
     Route: 048
     Dates: start: 20200810, end: 20200824

REACTIONS (5)
  - Gastrointestinal ulcer [None]
  - Melaena [None]
  - Arteriovenous malformation [None]
  - Faeces discoloured [None]
  - Asthenia [None]

NARRATIVE: CASE EVENT DATE: 20200824
